FAERS Safety Report 11411375 (Version 1)
Quarter: 2015Q3

REPORT INFORMATION
  Report Type: Spontaneous
  Country: US (occurrence: US)
  Receive Date: 20150821
  Receipt Date: 20150821
  Transmission Date: 20151125
  Serious: No
  Sender: FDA-Public Use
  Company Number: US-ELI_LILLY_AND_COMPANY-US201006005105

PATIENT
  Age: 58 Year
  Sex: Male

DRUGS (3)
  1. NOVOLOG [Concomitant]
     Active Substance: INSULIN ASPART
  2. HUMULIN N [Suspect]
     Active Substance: INSULIN HUMAN
     Indication: DIABETES MELLITUS
     Dosage: 18 U, 2/D
  3. HUMULIN N [Suspect]
     Active Substance: INSULIN HUMAN
     Dosage: 18 U, 2/D

REACTIONS (3)
  - Foreign body [Unknown]
  - Injection site haemorrhage [Unknown]
  - Foreign body [Unknown]

NARRATIVE: CASE EVENT DATE: 20100613
